FAERS Safety Report 24931211 (Version 2)
Quarter: 2025Q1

REPORT INFORMATION
  Report Type: Report from Study
  Country: US (occurrence: US)
  Receive Date: 20250205
  Receipt Date: 20250307
  Transmission Date: 20250409
  Serious: Yes (Other)
  Sender: AURINIA PHARMACEUTICALS
  Company Number: US-AURINIA PHARMACEUTICALS INC.-AUR-007303

PATIENT
  Sex: Female

DRUGS (2)
  1. LUPKYNIS [Suspect]
     Active Substance: VOCLOSPORIN
     Indication: Lupus nephritis
     Dosage: 23.7 MILLIGRAM, BID
     Route: 048
     Dates: start: 20240916
  2. LUPKYNIS [Suspect]
     Active Substance: VOCLOSPORIN
     Indication: Systemic lupus erythematosus

REACTIONS (5)
  - Rectal haemorrhage [Unknown]
  - Epistaxis [Unknown]
  - Haemoptysis [Unknown]
  - Nasal congestion [Unknown]
  - Abdominal pain upper [Unknown]
